FAERS Safety Report 7521685-7 (Version None)
Quarter: 2011Q2

REPORT INFORMATION
  Report Type: 
  Country: None (occurrence: None)
  Receive Date: 20110603
  Receipt Date: 20110525
  Transmission Date: 20111010
  Serious: Yes (Hospitalization, Other)
  Sender: FDA-Public Use
  Company Number: US-PERRIGO-11US002249

PATIENT
  Sex: Male

DRUGS (1)
  1. PERMETHRIN [Suspect]
     Indication: ACARODERMATITIS
     Dosage: 1 APPLICATION, SINGLE
     Route: 061
     Dates: start: 20110312, end: 20110312

REACTIONS (12)
  - HYPERSENSITIVITY [None]
  - OFF LABEL USE [None]
  - CONVULSION [None]
  - STARING [None]
  - DECREASED APPETITE [None]
  - VOMITING [None]
  - PAIN IN EXTREMITY [None]
  - CHOREOATHETOSIS [None]
  - DYSKINESIA [None]
  - INFANTILE APNOEIC ATTACK [None]
  - RESPIRATORY RATE DECREASED [None]
  - MUSCLE TWITCHING [None]
